FAERS Safety Report 6314885-5 (Version None)
Quarter: 2009Q3

REPORT INFORMATION
  Report Type: 
  Country: None (occurrence: None)
  Receive Date: 20090817
  Receipt Date: 20090804
  Transmission Date: 20100115
  Serious: Yes (Death)
  Sender: FDA-Public Use
  Company Number: 2009-194689-NL

PATIENT
  Age: 27 Year
  Sex: Female

DRUGS (3)
  1. IMPLANON [Suspect]
     Indication: DRUG USE FOR UNKNOWN INDICATION
  2. AVANZA SOLTAB (MIRTAZAPINE) [Suspect]
     Indication: DRUG USE FOR UNKNOWN INDICATION
     Dosage: 30 MG;QD
     Dates: start: 20080801
  3. EFEXOR 	/01233801/ [Concomitant]

REACTIONS (1)
  - PULMONARY EMBOLISM [None]
